FAERS Safety Report 9364661 (Version 1)
Quarter: 2013Q2

REPORT INFORMATION
  Report Type: Spontaneous
  Country: FR (occurrence: FR)
  Receive Date: 20130624
  Receipt Date: 20130624
  Transmission Date: 20140414
  Serious: Yes (Death, Hospitalization)
  Sender: FDA-Public Use
  Company Number: FR-TEVA-414403ISR

PATIENT
  Age: 91 Year
  Sex: Female

DRUGS (2)
  1. FUROSEMIDE RATIOPHARM 40 MG [Suspect]
  2. UNSPECFIED ANTIHYPERTENSIVE DRUG [Concomitant]
     Indication: HYPERTENSION

REACTIONS (3)
  - Cardiac arrest [Fatal]
  - Somnolence [Unknown]
  - Fatigue [Unknown]
